FAERS Safety Report 5530353-2 (Version None)
Quarter: 2007Q4

REPORT INFORMATION
  Report Type: 
  Country: None (occurrence: None)
  Receive Date: 20071130
  Receipt Date: 20071121
  Transmission Date: 20080405
  Serious: Yes (Other)
  Sender: FDA-Public Use
  Company Number: JP-ROCHE-487376

PATIENT
  Age: 7 Year
  Sex: Male
  Weight: 19 kg

DRUGS (4)
  1. TAMIFLU [Suspect]
     Dosage: REPORTED AS TAMIFLU DRY SYRUP 3%.
     Route: 048
     Dates: start: 20070305, end: 20070305
  2. FUMARUFEN [Concomitant]
     Dosage: DRUG REPORTED AS FUMARUFEN (KETOTIFEN FUMARATE).
     Route: 048
     Dates: start: 20070226
  3. RIZABEN [Concomitant]
     Dosage: FORM: DROPS (INTRAOCULAR).
     Route: 031
     Dates: start: 20070226
  4. FLUNASE [Concomitant]
     Dosage: DRUG REPORTED AS FLUNASE FOR PEDIATRIC (FLUTICASONE PROPIONATE).
     Route: 045
     Dates: start: 20070226

REACTIONS (7)
  - AMNESIA [None]
  - DELIRIUM [None]
  - FEAR [None]
  - HALLUCINATION [None]
  - HALLUCINATION, AUDITORY [None]
  - NIGHTMARE [None]
  - SPEECH DISORDER [None]
